FAERS Safety Report 6665569-5 (Version None)
Quarter: 2010Q2

REPORT INFORMATION
  Report Type: 
  Country: None (occurrence: None)
  Receive Date: 20100402
  Receipt Date: 20100326
  Transmission Date: 20101027
  Serious: Yes (Hospitalization)
  Sender: FDA-Public Use
  Company Number: CA-PFIZER INC-2010029592

PATIENT
  Sex: Male

DRUGS (6)
  1. CORTEF [Suspect]
     Indication: ADDISON'S DISEASE
     Dosage: 15 MG IN THE MORNING, 5 MG IN THE AFTERNOON AND 2.5 MG IN THE EVENING
     Route: 048
  2. SOLU-CORTEF [Suspect]
     Dosage: 100 MG, 4X/DAY (EVERY 6 HOURS)
     Route: 042
     Dates: start: 20100310, end: 20100313
  3. MELATONIN [Concomitant]
     Dosage: UNK
  4. VITAMIN C [Concomitant]
     Dosage: UNK
  5. DHEA [Concomitant]
     Dosage: UNK
  6. SEROTONIN [Concomitant]
     Dosage: UNK

REACTIONS (4)
  - ADRENOCORTICAL INSUFFICIENCY ACUTE [None]
  - FLUID RETENTION [None]
  - HEART RATE INCREASED [None]
  - WEIGHT INCREASED [None]
